FAERS Safety Report 23068713 (Version 2)
Quarter: 2023Q4

REPORT INFORMATION
  Report Type: Report from Study
  Country: US (occurrence: US)
  Receive Date: 20231016
  Receipt Date: 20231018
  Transmission Date: 20240110
  Serious: Yes (Hospitalization)
  Sender: FDA-Public Use
  Company Number: US-002147023-NVSC2023US220608

PATIENT
  Age: 79 Year
  Sex: Male
  Weight: 84.9 kg

DRUGS (2)
  1. NAPORAFENIB [Suspect]
     Active Substance: NAPORAFENIB
     Indication: Non-small cell lung cancer
     Dosage: 400 MG, BID
     Route: 048
     Dates: start: 20200226, end: 20231003
  2. KISQALI [Suspect]
     Active Substance: RIBOCICLIB
     Indication: Non-small cell lung cancer
     Dosage: 400 MG, QD
     Route: 048
     Dates: start: 20200226, end: 20230926

REACTIONS (1)
  - Acute myeloid leukaemia [Not Recovered/Not Resolved]

NARRATIVE: CASE EVENT DATE: 20231010
